FAERS Safety Report 5634407-1 (Version None)
Quarter: 2008Q1

REPORT INFORMATION
  Report Type: 
  Country: None (occurrence: None)
  Receive Date: 20080222
  Receipt Date: 20080218
  Transmission Date: 20080703
  Serious: Yes (Hospitalization)
  Sender: FDA-Public Use
  Company Number: FR-BRISTOL-MYERS SQUIBB COMPANY-14079883

PATIENT
  Age: 68 Year
  Sex: Male

DRUGS (7)
  1. AMIKIN [Suspect]
     Indication: LUNG DISORDER
     Dates: start: 20070920, end: 20070922
  2. TAZOCILLINE [Suspect]
     Indication: LUNG DISORDER
     Dates: start: 20070920, end: 20070922
  3. SPIRONOLACTONE [Suspect]
     Dates: start: 20070912
  4. ALTIZIDE [Suspect]
  5. PERFALGAN [Concomitant]
     Dates: start: 20070920
  6. OGASTORO [Concomitant]
     Dates: start: 20070920
  7. KENZEN [Concomitant]

REACTIONS (1)
  - DERMATITIS BULLOUS [None]
